FAERS Safety Report 13106689 (Version 2)
Quarter: 2017Q1

REPORT INFORMATION
  Report Type: Report from Study
  Country: US (occurrence: US)
  Receive Date: 20170111
  Receipt Date: 20170322
  Transmission Date: 20170428
  Serious: Yes (Hospitalization, Other)
  Sender: FDA-Public Use
  Company Number: US-OTSUKA-2017_000386

PATIENT
  Age: 60 Year
  Sex: Female

DRUGS (3)
  1. REVIA [Concomitant]
     Active Substance: NALTREXONE HYDROCHLORIDE
     Indication: ABSTAINS FROM ALCOHOL
     Dosage: 100 MG, QD
     Route: 065
     Dates: start: 20161103
  2. DEXTROMETHORPHAN/QUINIDINE [Suspect]
     Active Substance: DEXTROMETHORPHAN HYDROBROMIDE\QUINIDINE SULFATE
     Indication: AFFECT LABILITY
     Dosage: 1 DF, BID (EVERY 12 HOURS)
     Route: 065
     Dates: start: 20161003, end: 20170105
  3. WELLBUTRIN [Interacting]
     Active Substance: BUPROPION HYDROCHLORIDE
     Indication: SMOKING CESSATION THERAPY
     Dosage: UNK
     Route: 065

REACTIONS (15)
  - Alanine aminotransferase increased [Recovering/Resolving]
  - Drug interaction [Unknown]
  - Cerebrovascular accident [Unknown]
  - Hypokalaemia [Recovering/Resolving]
  - Dermatitis [Recovered/Resolved]
  - Musculoskeletal pain [Unknown]
  - Off label use [Unknown]
  - Speech disorder [Recovered/Resolved]
  - Pain [Recovered/Resolved]
  - Myocardial infarction [Unknown]
  - Pruritus [Recovered/Resolved]
  - Troponin increased [Recovering/Resolving]
  - Chest pain [Recovering/Resolving]
  - Scratch [Unknown]
  - Erythema [Recovered/Resolved]

NARRATIVE: CASE EVENT DATE: 20161103
